FAERS Safety Report 21006831 (Version 1)
Quarter: 2022Q2

REPORT INFORMATION
  Report Type: Report from Study
  Country: FR (occurrence: FR)
  Receive Date: 20220625
  Receipt Date: 20220625
  Transmission Date: 20220721
  Serious: Yes (Other)
  Sender: FDA-Public Use
  Company Number: FR-BRISTOL-MYERS SQUIBB COMPANY-BMS-2022-024649

PATIENT
  Age: 62 Year
  Sex: Male

DRUGS (4)
  1. NIVOLUMAB [Suspect]
     Active Substance: NIVOLUMAB
     Indication: Malignant melanoma
     Dosage: 480 MILLIGRAM, Q4WK
     Route: 042
     Dates: start: 20210210, end: 20220201
  2. BIFONAZOLE [Concomitant]
     Active Substance: BIFONAZOLE
     Indication: Product used for unknown indication
     Dosage: UNK
     Route: 065
  3. CLOBETASOL PROPIONATE [Concomitant]
     Active Substance: CLOBETASOL PROPIONATE
     Indication: Product used for unknown indication
     Dosage: UNK
     Route: 065
  4. ALBUTEROL [Concomitant]
     Active Substance: ALBUTEROL
     Indication: Product used for unknown indication
     Dosage: UNK
     Route: 065

REACTIONS (6)
  - Photodermatosis [Not Recovered/Not Resolved]
  - Tendonitis [Not Recovered/Not Resolved]
  - Myalgia [Not Recovered/Not Resolved]
  - Actinic keratosis [Not Recovered/Not Resolved]
  - Eosinophilic fasciitis [Not Recovered/Not Resolved]
  - Eosinophilia [Unknown]

NARRATIVE: CASE EVENT DATE: 20220104
